FAERS Safety Report 8357258-6 (Version None)
Quarter: 2012Q2

REPORT INFORMATION
  Report Type: 
  Country: None (occurrence: None)
  Receive Date: 20120514
  Receipt Date: 20120510
  Transmission Date: 20120825
  Serious: Yes (Other)
  Sender: FDA-Public Use
  Company Number: PHFR2012GB002656

PATIENT
  Sex: Male
  Weight: 74.3 kg

DRUGS (4)
  1. FERROUS FUMARATE [Concomitant]
     Indication: ANAEMIA
     Dosage: 420 MG, DAILY
     Route: 048
  2. LAXIDO [Concomitant]
     Indication: CONSTIPATION
     Dosage: UNK UKN, UNK
     Route: 048
  3. CASODEX [Concomitant]
     Indication: PROSTATE CANCER
     Dosage: 50 MG, DAILY
     Route: 048
     Dates: start: 20120501
  4. CLOZARIL [Suspect]
     Indication: SCHIZOPHRENIA
     Dosage: 25 MG, BD
     Route: 048
     Dates: start: 20120322

REACTIONS (1)
  - DEEP VEIN THROMBOSIS [None]
